FAERS Safety Report 7956905-8 (Version None)
Quarter: 2011Q4

REPORT INFORMATION
  Report Type: 
  Country: None (occurrence: None)
  Receive Date: 20111205
  Receipt Date: 20111128
  Transmission Date: 20120403
  Serious: No
  Sender: FDA-Public Use
  Company Number: US-B.I. PHARMACEUTICALS,INC./RIDGEFIELD-2011-BP-27056BP

PATIENT
  Age: 69 Year
  Sex: Male

DRUGS (3)
  1. PRADAXA [Suspect]
     Indication: ATRIAL FIBRILLATION
     Dosage: 300 MG
     Route: 048
     Dates: start: 20110801, end: 20111101
  2. SPIRIVA [Concomitant]
     Indication: CHRONIC OBSTRUCTIVE PULMONARY DISEASE
  3. SPIRIVA [Concomitant]
     Indication: ASTHMA

REACTIONS (2)
  - ERYTHEMA [None]
  - PRURITUS GENERALISED [None]
